FAERS Safety Report 5519842-4 (Version None)
Quarter: 2007Q4

REPORT INFORMATION
  Report Type: 
  Country: None (occurrence: None)
  Receive Date: 20071116
  Receipt Date: 20070913
  Transmission Date: 20080405
  Serious: No
  Sender: FDA-Public Use
  Company Number: A0681848A

PATIENT
  Age: 75 Year
  Sex: Male

DRUGS (3)
  1. COREG CR [Suspect]
     Indication: HYPERTENSION
     Dosage: 20MG PER DAY
     Route: 048
     Dates: start: 20070910
  2. ALTACE [Concomitant]
  3. ZOCOR [Concomitant]

REACTIONS (2)
  - FATIGUE [None]
  - HYPOTENSION [None]
